FAERS Safety Report 24643068 (Version 1)
Quarter: 2024Q4

REPORT INFORMATION
  Report Type: Spontaneous
  Country: CN (occurrence: CN)
  Receive Date: 20241120
  Receipt Date: 20241120
  Transmission Date: 20250115
  Serious: Yes (Other)
  Sender: PFIZER
  Company Number: CN-PFIZER INC-PV202400149116

PATIENT
  Age: 4 Month
  Sex: Male
  Weight: 5.7 kg

DRUGS (3)
  1. LINEZOLID [Suspect]
     Active Substance: LINEZOLID
     Indication: Pneumonia
     Dosage: 57 MG, 3X/DAY
     Route: 048
     Dates: start: 20241028, end: 20241115
  2. CEFOPERAZONE SODIUM\SULBACTAM SODIUM [Suspect]
     Active Substance: CEFOPERAZONE SODIUM\SULBACTAM SODIUM
     Indication: Pneumonia
     Dosage: 0.28 G, 3X/DAY
     Route: 041
     Dates: start: 20241028, end: 20241115
  3. SODIUM CHLORIDE [Concomitant]
     Active Substance: SODIUM CHLORIDE
     Indication: Vehicle solution use
     Dosage: 5 ML, 3X/DAY
     Route: 041
     Dates: start: 20241028, end: 20241115

REACTIONS (3)
  - Gastrointestinal disorder [Recovering/Resolving]
  - Infantile diarrhoea [Recovering/Resolving]
  - Faeces discoloured [Recovering/Resolving]

NARRATIVE: CASE EVENT DATE: 20241031
